FAERS Safety Report 10171102 (Version 1)
Quarter: 2014Q2

REPORT INFORMATION
  Report Type: Spontaneous
  Country: US (occurrence: None)
  Receive Date: 20140512
  Receipt Date: 20140512
  Transmission Date: 20141212
  Serious: Yes (Other)
  Sender: FDA-Public Use
  Company Number: 2014AP002931

PATIENT
  Age: 35 Year
  Sex: Male

DRUGS (4)
  1. AMLODIPINE BESYLATE [Suspect]
     Indication: INTENTIONAL OVERDOSE
     Route: 048
  2. VERAPAMIL HYDROCHLORIDE [Suspect]
     Indication: INTENTIONAL OVERDOSE
     Dosage: 10.26G
  3. METOPROLOL (METOPROLOL) [Suspect]
     Indication: INTENTIONAL OVERDOSE
     Dosage: 1.18 G
  4. INSULIN (INSULIN) [Concomitant]

REACTIONS (5)
  - Cardiogenic shock [None]
  - Renal failure acute [None]
  - Intentional overdose [None]
  - Lactic acidosis [None]
  - Sinus bradycardia [None]
